FAERS Safety Report 4937992-8 (Version None)
Quarter: 2006Q1

REPORT INFORMATION
  Report Type: 
  Country: None (occurrence: None)
  Receive Date: 20060309
  Receipt Date: 20050630
  Transmission Date: 20060701
  Serious: No
  Sender: FDA-Public Use
  Company Number: US-BRISTOL-MYERS SQUIBB COMPANY-13020821

PATIENT
  Age: 22 Year
  Sex: Female
  Weight: 66 kg

DRUGS (2)
  1. VAGISTAT-1 [Suspect]
     Indication: VULVOVAGINAL MYCOTIC INFECTION
     Dates: start: 20050629, end: 20050629
  2. LECITHIN [Concomitant]
     Dosage: DOSE VALUE:  1200 (TRIPLE)

REACTIONS (3)
  - DYSURIA [None]
  - VAGINAL BURNING SENSATION [None]
  - VAGINAL SWELLING [None]
